FAERS Safety Report 9158730 (Version 1)
Quarter: 2013Q1

REPORT INFORMATION
  Report Type: Spontaneous
  Country: US (occurrence: US)
  Receive Date: 20130312
  Receipt Date: 20130312
  Transmission Date: 20140127
  Serious: Yes (Hospitalization, Other)
  Sender: FDA-Public Use
  Company Number: US-US-EMD SERONO, INC.-7079882

PATIENT
  Age: 41 None
  Sex: Female
  Weight: 61 kg

DRUGS (2)
  1. REBIF [Suspect]
     Indication: MULTIPLE SCLEROSIS
     Route: 058
     Dates: start: 20090901
  2. REBIF [Suspect]
     Route: 058

REACTIONS (8)
  - Abortion spontaneous [Recovered/Resolved]
  - Multiple sclerosis relapse [Recovered/Resolved]
  - Amnesia [Not Recovered/Not Resolved]
  - Fatigue [Not Recovered/Not Resolved]
  - Injection site nodule [Not Recovered/Not Resolved]
  - Injection site pain [Unknown]
  - Injection site haemorrhage [Not Recovered/Not Resolved]
  - Maternal exposure timing unspecified [Recovered/Resolved]
